FAERS Safety Report 17819864 (Version 1)
Quarter: 2020Q2

REPORT INFORMATION
  Report Type: Spontaneous
  Country: US (occurrence: US)
  Receive Date: 20200524
  Receipt Date: 20200524
  Transmission Date: 20200714
  Serious: No
  Sender: FDA-Public Use
  Company Number: US-ASTRAZENECA-2020SE65608

PATIENT
  Sex: Female

DRUGS (1)
  1. BUDESONIDE AND FORMOTEROL AEROSOL [Suspect]
     Active Substance: BUDESONIDE\FORMOTEROL FUMARATE DIHYDRATE
     Dosage: 160/4.5 MCG 2 PUFFS TWICE DAILY
     Route: 055

REACTIONS (6)
  - Dyspnoea [Unknown]
  - Device issue [Unknown]
  - Anxiety [Unknown]
  - Insomnia [Unknown]
  - Product dose omission [Unknown]
  - Drug ineffective [Unknown]
